FAERS Safety Report 8352531-X (Version None)
Quarter: 2012Q2

REPORT INFORMATION
  Report Type: 
  Country: None (occurrence: None)
  Receive Date: 20120511
  Receipt Date: 20120508
  Transmission Date: 20120825
  Serious: Yes (Death)
  Sender: FDA-Public Use
  Company Number: PHEH2012US006445

PATIENT
  Age: 53 Year
  Sex: Male
  Weight: 150 kg

DRUGS (1)
  1. GLEEVEC [Suspect]
     Dosage: 100 MG, DAILY
     Route: 048
     Dates: start: 20120214

REACTIONS (1)
  - DEATH [None]
